FAERS Safety Report 8081520-8 (Version None)
Quarter: 2012Q1

REPORT INFORMATION
  Report Type: 
  Country: None (occurrence: None)
  Receive Date: 20120130
  Receipt Date: 20120119
  Transmission Date: 20120608
  Serious: Yes (Hospitalization, Other)
  Sender: FDA-Public Use
  Company Number: US-BAXTER-2012BH001919

PATIENT
  Sex: Male

DRUGS (2)
  1. DIANEAL [Suspect]
     Indication: PERITONEAL DIALYSIS
     Route: 033
     Dates: start: 20110610
  2. DIANEAL [Suspect]
     Indication: PERITONEAL DIALYSIS
     Route: 033

REACTIONS (10)
  - ABDOMINAL PAIN [None]
  - PERITONEAL DIALYSIS COMPLICATION [None]
  - HYPOTENSION [None]
  - URINARY TRACT INFECTION [None]
  - INCORRECT DOSE ADMINISTERED [None]
  - ABDOMINAL DISTENSION [None]
  - FLUID OVERLOAD [None]
  - DEHYDRATION [None]
  - ABDOMINAL PAIN LOWER [None]
  - PERITONITIS BACTERIAL [None]
